FAERS Safety Report 18297457 (Version 10)
Quarter: 2024Q3

REPORT INFORMATION
  Report Type: Spontaneous
  Country: PT (occurrence: PT)
  Receive Date: 20200923
  Receipt Date: 20240704
  Transmission Date: 20241017
  Serious: Yes (Hospitalization, Other)
  Sender: AUROBINDO
  Company Number: PT-ASTELLAS-2020US031872

PATIENT
  Age: 55 Year
  Sex: Male

DRUGS (3)
  1. AMOXICILLIN\CLAVULANIC ACID [Suspect]
     Active Substance: AMOXICILLIN\CLAVULANIC ACID
     Indication: Respiratory tract infection
     Dosage: UNK
     Route: 048
  2. LICORICE [Suspect]
     Active Substance: LICORICE
     Indication: Product used for unknown indication
     Dosage: UNK, ONCE A DAY  (CANDIES)
     Route: 065
  3. GLYCYRRHIZA GLABRA [Concomitant]
     Active Substance: GLYCYRRHIZA GLABRA
     Indication: Product used for unknown indication
     Dosage: UNK
     Route: 065

REACTIONS (8)
  - Rash maculo-papular [Recovered/Resolved]
  - Nephrosclerosis [Unknown]
  - Toxic skin eruption [Recovered/Resolved]
  - Eosinophilia [Recovered/Resolved]
  - Pyrexia [Recovered/Resolved]
  - Hypertension [Unknown]
  - Hypertensive heart disease [Unknown]
  - Skin toxicity [Recovered/Resolved]
